FAERS Safety Report 16314249 (Version 4)
Quarter: 2019Q3

REPORT INFORMATION
  Report Type: Report from Study
  Country: SG (occurrence: SG)
  Receive Date: 20190515
  Receipt Date: 20190806
  Transmission Date: 20191004
  Serious: Yes (Hospitalization)
  Sender: FDA-Public Use
  Company Number: SG-EMD SERONO-E2B_90067970

PATIENT
  Age: 59 Year
  Sex: Female
  Weight: 54 kg

DRUGS (25)
  1. AVELUMAB [Suspect]
     Active Substance: AVELUMAB
     Indication: PANCREATIC CARCINOMA
     Dosage: 800 MG, EVERY 2 WEEKS (Q2W); DOUBLET ARM COHORT 4
     Route: 042
     Dates: start: 20190410, end: 20190503
  2. BINIMETINIB [Suspect]
     Active Substance: BINIMETINIB
     Indication: PANCREATIC CARCINOMA
     Dosage: 30 MG, 2X/DAY, DOUBLET ARM COHORT 4
     Route: 048
     Dates: start: 20190410, end: 20190503
  3. OMEPRAZOLE. [Concomitant]
     Active Substance: OMEPRAZOLE
     Indication: GASTRIC DISORDER
     Dosage: 40 MG, 2X/DAY
     Route: 048
     Dates: start: 201509
  4. PREGABALIN. [Concomitant]
     Active Substance: PREGABALIN
     Indication: HYPOAESTHESIA
     Dosage: 75 MG, ON
     Route: 048
     Dates: start: 20170421
  5. WHITE SOFT PARAFFIN [Concomitant]
     Active Substance: PARAFFIN
     Indication: DRY SKIN
     Dosage: 1,  2X/DAY, OINTMENT BP
     Route: 061
     Dates: start: 20170112
  6. FEXOFENADINE [Concomitant]
     Active Substance: FEXOFENADINE HYDROCHLORIDE
     Indication: ERYTHEMA MULTIFORME
     Dosage: 180 MG, OM
     Route: 048
     Dates: start: 20190506
  7. SENNOSIDE [SENNOSIDE A+B] [Concomitant]
     Active Substance: SENNOSIDES A AND B
     Indication: CONSTIPATION
     Dosage: 2 TABLETS, ON
     Route: 048
     Dates: start: 201509
  8. PANCREATIN [Concomitant]
     Active Substance: PANCRELIPASE
     Indication: DYSPEPSIA
     Dosage: 150 MG, 3X/DAY
     Route: 048
     Dates: start: 20170301
  9. LIDOCAINE 2% VISCOUS SOLUTION [Concomitant]
     Indication: MUCOSAL INFLAMMATION
     Dosage: 10 ML, 3X/DAY
     Route: 048
     Dates: start: 20190426
  10. METFORMIN HCL [Concomitant]
     Active Substance: METFORMIN HYDROCHLORIDE
     Indication: TYPE 2 DIABETES MELLITUS
     Dosage: 500 MG, 2X/DAY
     Route: 048
     Dates: start: 20190630
  11. PARACETAMOL [Concomitant]
     Active Substance: ACETAMINOPHEN
     Indication: PYREXIA
  12. DOMPERIDONE [Concomitant]
     Active Substance: DOMPERIDONE
     Indication: NAUSEA
     Dosage: 10 MG, 3X/DAY
     Route: 048
     Dates: start: 20190125
  13. NYSTATIN. [Concomitant]
     Active Substance: NYSTATIN
     Indication: MUCOSAL INFLAMMATION
     Dosage: 5 ML, 4X/DAY, SUSPENSION
     Route: 048
     Dates: start: 20190503
  14. NIFEDIPINE. [Concomitant]
     Active Substance: NIFEDIPINE
     Indication: HYPERTENSION
     Dosage: 30 MG, OM
     Route: 048
     Dates: start: 201504
  15. DOMPERIDONE [Concomitant]
     Active Substance: DOMPERIDONE
     Indication: VOMITING
  16. DEXAMETHASONE. [Concomitant]
     Active Substance: DEXAMETHASONE
     Indication: MUCOSAL INFLAMMATION
     Dosage: 2.5 MG, 4X/DAY
     Route: 048
     Dates: start: 20190503
  17. PARACETAMOL [Concomitant]
     Active Substance: ACETAMINOPHEN
     Indication: PAIN
     Dosage: 1 G, 4X/DAY
     Route: 048
     Dates: start: 201509
  18. TEARS NATURALE II [DEXTRAN 70;HYPROMELLOSE] [Concomitant]
     Indication: DRY SKIN
     Dosage: 1 DROP, 4X/DAY
     Route: 047
     Dates: start: 201608
  19. MYLANTA [Concomitant]
     Active Substance: ALUMINUM HYDROXIDE\DIMETHICONE\MAGNESIUM HYDROXIDE
     Indication: MUCOSAL INFLAMMATION
     Dosage: 10 ML, 3X/DAY
     Route: 048
     Dates: start: 20190426
  20. ORAL AID LOTION [Concomitant]
     Indication: MUCOSAL INFLAMMATION
     Dosage: 1 APPLICATION, 3X/DAY
     Route: 048
     Dates: start: 20190506
  21. LACTULOSE. [Concomitant]
     Active Substance: LACTULOSE
     Indication: CONSTIPATION
     Dosage: 10 ML, 3X/DAY (TDS)
     Route: 048
     Dates: start: 201509
  22. BECLOMETASONE DIPROPIONATE INHALER [Concomitant]
     Indication: ASTHMA
     Dosage: 50 MG, OM
     Route: 055
     Dates: start: 201504
  23. FLUTICASONE FUROATE [Concomitant]
     Active Substance: FLUTICASONE FUROATE
     Indication: ASTHMA
     Dosage: 27.5 UG, OM
     Route: 055
     Dates: start: 201504
  24. LORATADINE. [Concomitant]
     Active Substance: LORATADINE
     Indication: HYPERSENSITIVITY
     Dosage: 1 TABLET, OM
     Route: 048
     Dates: start: 20190412
  25. CHLORHEXIDINE [Concomitant]
     Active Substance: CHLORHEXIDINE
     Indication: MUCOSAL INFLAMMATION
     Dosage: 15 ML, 4X/DAY
     Route: 049
     Dates: start: 20190429

REACTIONS (1)
  - Mucosal inflammation [Recovered/Resolved]

NARRATIVE: CASE EVENT DATE: 20190429
